FAERS Safety Report 5723332-3 (Version None)
Quarter: 2008Q2

REPORT INFORMATION
  Report Type: 
  Country: None (occurrence: None)
  Receive Date: 20080425
  Receipt Date: 20080402
  Transmission Date: 20081010
  Serious: Yes (Other)
  Sender: FDA-Public Use
  Company Number: DSA_26456_2005

PATIENT
  Age: 15 Year
  Sex: Male

DRUGS (7)
  1. ENALAPRIL MALEATE [Suspect]
     Indication: HYPERTENSION
     Dosage: (5 MG QD ORAL)
     Route: 048
     Dates: start: 20040727, end: 20041208
  2. ENALAPRIL MALEATE [Suspect]
     Indication: PROTEIN URINE PRESENT
     Dosage: (5 MG QD ORAL)
     Route: 048
     Dates: start: 20040727, end: 20041208
  3. NU-LOTAN (NU-LOTAN - LOSARTAN) POTASSIUM (NOT SPECIFIED) [Suspect]
     Indication: HYPERTENSION
     Dosage: (50 MG QD ORAL)
     Route: 048
     Dates: start: 20040727, end: 20041208
  4. NU-LOTAN (NU-LOTAN - LOSARTAN) POTASSIUM (NOT SPECIFIED) [Suspect]
     Indication: PROTEIN URINE PRESENT
     Dosage: (50 MG QD ORAL)
     Route: 048
     Dates: start: 20040727, end: 20041208
  5. KREMEZIN [Concomitant]
  6. PERSANTINE [Concomitant]
  7. ALLOPURINOL [Concomitant]

REACTIONS (2)
  - HYPERTENSION [None]
  - RENAL IMPAIRMENT [None]
